FAERS Safety Report 5682743-5 (Version None)
Quarter: 2008Q1

REPORT INFORMATION
  Report Type: 
  Country: None (occurrence: None)
  Receive Date: 20080326
  Receipt Date: 20080326
  Transmission Date: 20080703
  Serious: Yes (Hospitalization)
  Sender: FDA-Public Use
  Company Number: None

PATIENT
  Age: 65 Year
  Sex: Male
  Weight: 93.64 kg

DRUGS (1)
  1. ALPROSTADIL [Suspect]
     Dosage: 500MCG PRN OTHER
     Route: 050
     Dates: start: 20071025, end: 20071127

REACTIONS (1)
  - PRIAPISM [None]
